FAERS Safety Report 4307297-7 (Version None)
Quarter: 2004Q1

REPORT INFORMATION
  Report Type: 
  Country: None (occurrence: None)
  Receive Date: 20040226
  Receipt Date: 20040220
  Transmission Date: 20041129
  Serious: Yes (Other)
  Sender: FDA-Public Use
  Company Number: 2004200014US

PATIENT
  Age: 75 Year
  Sex: Female

DRUGS (3)
  1. CELEBREX [Suspect]
     Indication: ARTHRITIS
     Dosage: ORAL
     Route: 048
  2. MAXZIDE [Concomitant]
  3. SYNVISC [Concomitant]

REACTIONS (2)
  - NAUSEA [None]
  - REACTION TO DRUG EXCIPIENT [None]
